FAERS Safety Report 11491005 (Version 1)
Quarter: 2015Q3

REPORT INFORMATION
  Report Type: Spontaneous
  Country: US (occurrence: US)
  Receive Date: 20150910
  Receipt Date: 20150910
  Transmission Date: 20151125
  Serious: No
  Sender: FDA-Public Use
  Company Number: US-JNJFOC-20150806644

PATIENT
  Age: 22 Year
  Sex: Male
  Weight: 62.6 kg

DRUGS (2)
  1. SIMPONI [Suspect]
     Active Substance: GOLIMUMAB
     Indication: ANKYLOSING SPONDYLITIS
     Route: 058
  2. IBUPROFEN. [Concomitant]
     Active Substance: IBUPROFEN
     Indication: ARTHRALGIA
     Route: 048
     Dates: start: 201505

REACTIONS (4)
  - Drug dose omission [Unknown]
  - Needle issue [Unknown]
  - Anxiety [Unknown]
  - Device malfunction [Unknown]

NARRATIVE: CASE EVENT DATE: 20150407
